FAERS Safety Report 8481110-9 (Version None)
Quarter: 2012Q3

REPORT INFORMATION
  Report Type: 
  Country: None (occurrence: None)
  Receive Date: 20120702
  Receipt Date: 20120622
  Transmission Date: 20120928
  Serious: Yes (Hospitalization)
  Sender: FDA-Public Use
  Company Number: US-JNJFOC-20120612176

PATIENT
  Sex: Female

DRUGS (1)
  1. DURAGESIC-100 [Suspect]
     Indication: PAIN
     Route: 062

REACTIONS (5)
  - HOSPITALISATION [None]
  - INFECTION [None]
  - PRODUCT QUALITY ISSUE [None]
  - DEHYDRATION [None]
  - GASTROINTESTINAL DISORDER [None]
